FAERS Safety Report 9449358 (Version 2)
Quarter: 2013Q3

REPORT INFORMATION
  Report Type: Spontaneous
  Country: ZA (occurrence: ZA)
  Receive Date: 20130808
  Receipt Date: 20130819
  Transmission Date: 20140515
  Serious: No
  Sender: FDA-Public Use
  Company Number: ZA-PFIZER INC-2013227166

PATIENT
  Age: 36 Year
  Sex: Male

DRUGS (1)
  1. CHAMPIX [Suspect]
     Indication: SMOKING CESSATION THERAPY
     Dosage: UNK
     Route: 048
     Dates: start: 201301

REACTIONS (10)
  - Depression [Recovered/Resolved]
  - Anxiety [Recovered/Resolved]
  - Mood swings [Recovered/Resolved]
  - Headache [Recovered/Resolved]
  - Vomiting [Recovered/Resolved]
  - Nausea [Recovered/Resolved]
  - Tremor [Recovered/Resolved]
  - Irritability [Unknown]
  - Tobacco withdrawal symptoms [Unknown]
  - Abnormal dreams [Not Recovered/Not Resolved]
